FAERS Safety Report 21750065 (Version 1)
Quarter: 2022Q4

REPORT INFORMATION
  Report Type: Spontaneous
  Country: HR (occurrence: HR)
  Receive Date: 20221219
  Receipt Date: 20221219
  Transmission Date: 20230113
  Serious: Yes (Hospitalization)
  Sender: FDA-Public Use
  Company Number: HR-JNJFOC-20221210942

PATIENT
  Sex: Male

DRUGS (12)
  1. DEXAMETHASONE [Suspect]
     Active Substance: DEXAMETHASONE
     Indication: Plasma cell myeloma
     Route: 065
     Dates: start: 201402, end: 201411
  2. DEXAMETHASONE [Suspect]
     Active Substance: DEXAMETHASONE
     Route: 065
     Dates: end: 201303
  3. DEXAMETHASONE [Suspect]
     Active Substance: DEXAMETHASONE
     Route: 065
     Dates: start: 201208
  4. CYCLOPHOSPHAMIDE [Suspect]
     Active Substance: CYCLOPHOSPHAMIDE
     Indication: Plasma cell myeloma
     Route: 065
     Dates: start: 201402, end: 201411
  5. PAMIDRONATE [Suspect]
     Active Substance: PAMIDRONATE DISODIUM
     Indication: Plasma cell myeloma
     Route: 065
     Dates: end: 201303
  6. PAMIDRONATE [Suspect]
     Active Substance: PAMIDRONATE DISODIUM
     Route: 065
     Dates: start: 201203
  7. PAMIDRONATE [Suspect]
     Active Substance: PAMIDRONATE DISODIUM
     Route: 065
     Dates: start: 201402, end: 201411
  8. PAMIDRONATE [Suspect]
     Active Substance: PAMIDRONATE DISODIUM
     Route: 065
     Dates: start: 201112, end: 201202
  9. UNSPECIFIED INGREDIENT [Suspect]
     Active Substance: UNSPECIFIED INGREDIENT
     Indication: Plasma cell myeloma
     Route: 065
     Dates: start: 201208
  10. VELCADE [Suspect]
     Active Substance: BORTEZOMIB
     Indication: Plasma cell myeloma
     Route: 065
     Dates: start: 201208
  11. VELCADE [Suspect]
     Active Substance: BORTEZOMIB
     Dates: start: 201402, end: 201411
  12. VELCADE [Suspect]
     Active Substance: BORTEZOMIB
     Dates: end: 201303

REACTIONS (3)
  - Pneumonia [Unknown]
  - Respiratory arrest [Recovered/Resolved]
  - Disease progression [Unknown]

NARRATIVE: CASE EVENT DATE: 20120901
